FAERS Safety Report 4662761-6 (Version None)
Quarter: 2005Q2

REPORT INFORMATION
  Report Type: 
  Country: None (occurrence: None)
  Receive Date: 20050512
  Receipt Date: 20050425
  Transmission Date: 20051028
  Serious: Yes (Hospitalization)
  Sender: FDA-Public Use
  Company Number: CA_050207786

PATIENT
  Age: 84 Year
  Sex: Female
  Weight: 55 kg

DRUGS (12)
  1. FORTEO [Suspect]
     Indication: OSTEOPOROSIS
     Dosage: 20 UG DAY
     Dates: start: 20041117, end: 20050401
  2. AMLODIPINE [Concomitant]
  3. METOPROLOL [Concomitant]
  4. OMEPRAZOLE [Concomitant]
  5. HYDROCHLOROTHIAZIDE [Concomitant]
  6. TYLENOL W/ CODEINE NO. 3 [Concomitant]
  7. EYE DROPS (TETRYZOLINE HYDROCHLORIDE) [Concomitant]
  8. ENTROPHEN (ACETYLSALICYLIC ACID) [Concomitant]
  9. IRON [Concomitant]
  10. VITAMIN D [Concomitant]
  11. CALCIUM GLUCONATE [Concomitant]
  12. MULTI-VITAMIN [Concomitant]

REACTIONS (3)
  - ASTHENIA [None]
  - MUSCLE SPASMS [None]
  - MYOCARDIAL INFARCTION [None]
